FAERS Safety Report 18798349 (Version 1)
Quarter: 2021Q1

REPORT INFORMATION
  Report Type: Report from Study
  Country: IT (occurrence: IT)
  Receive Date: 20210128
  Receipt Date: 20210128
  Transmission Date: 20210419
  Serious: No
  Sender: FDA-Public Use
  Company Number: IT-KARYOPHARM-2020KPT001602

PATIENT
  Age: 42 Year
  Sex: Male

DRUGS (1)
  1. SELINEXOR [Suspect]
     Active Substance: SELINEXOR
     Indication: NEUROFIBROSARCOMA
     Dosage: 60 MG, 2X/WEEK
     Route: 048
     Dates: start: 20191220, end: 20200819

REACTIONS (1)
  - Neurofibrosarcoma [Unknown]
